FAERS Safety Report 8275993-5 (Version None)
Quarter: 2012Q2

REPORT INFORMATION
  Report Type: 
  Country: None (occurrence: None)
  Receive Date: 20120412
  Receipt Date: 20120409
  Transmission Date: 20120825
  Serious: Yes (Hospitalization, Other)
  Sender: FDA-Public Use
  Company Number: US-PFIZER INC-2012089459

PATIENT
  Sex: Male

DRUGS (3)
  1. METOPROLOL [Concomitant]
     Indication: HYPERTENSION
     Dosage: 100 MG, 2X/DAY
  2. CARDIZEM [Suspect]
     Indication: HEART RATE IRREGULAR
     Dosage: 20 MG, UNK
  3. TIKOSYN [Suspect]
     Indication: ATRIAL FIBRILLATION
     Dosage: 500 UG, 2X/DAY
     Dates: start: 20120404, end: 20120401

REACTIONS (2)
  - ELECTROCARDIOGRAM QT PROLONGED [None]
  - ATRIOVENTRICULAR BLOCK FIRST DEGREE [None]
